FAERS Safety Report 17800815 (Version 12)
Quarter: 2023Q1

REPORT INFORMATION
  Report Type: Report from Study
  Country: CA (occurrence: CA)
  Receive Date: 20200518
  Receipt Date: 20230207
  Transmission Date: 20230417
  Serious: Yes (Hospitalization, Other)
  Sender: FDA-Public Use
  Company Number: PHHY2018CA073078

PATIENT
  Age: 74 Year
  Sex: Male

DRUGS (5)
  1. SANDOSTATIN [Suspect]
     Active Substance: OCTREOTIDE ACETATE
     Indication: Neuroendocrine tumour
     Dosage: UNK UNK, TID
     Route: 058
     Dates: start: 2017, end: 2018
  2. SANDOSTATIN [Suspect]
     Active Substance: OCTREOTIDE ACETATE
     Dosage: UNK UNK, TID
     Route: 058
     Dates: start: 20171027, end: 20180108
  3. SANDOSTATIN [Suspect]
     Active Substance: OCTREOTIDE ACETATE
  4. SANDOSTATIN LAR DEPOT [Suspect]
     Active Substance: OCTREOTIDE ACETATE
     Indication: Neuroendocrine tumour
     Dosage: 30 MG, Q4W
     Route: 030
     Dates: start: 20180419
  5. BISOPROLOL [Concomitant]
     Active Substance: BISOPROLOL
     Indication: Cardiac disorder
     Dosage: UNK, QD
     Route: 048

REACTIONS (28)
  - Intestinal obstruction [Recovered/Resolved]
  - Anal abscess [Unknown]
  - Orthostatic hypotension [Unknown]
  - Hypertension [Unknown]
  - Heart rate decreased [Unknown]
  - Pain in extremity [Recovered/Resolved]
  - Blood pressure diastolic decreased [Unknown]
  - Rhinorrhoea [Unknown]
  - Breast pain [Recovering/Resolving]
  - Paraesthesia [Unknown]
  - Body temperature decreased [Unknown]
  - Lacrimal disorder [Unknown]
  - Pain in jaw [Unknown]
  - Hyperhidrosis [Unknown]
  - Chest discomfort [Recovered/Resolved]
  - Chest pain [Unknown]
  - Blood pressure systolic increased [Unknown]
  - Hypoaesthesia [Unknown]
  - Nodule [Unknown]
  - COVID-19 [Unknown]
  - Cough [Unknown]
  - Hypersensitivity [Unknown]
  - Dizziness [Unknown]
  - Nausea [Unknown]
  - Diarrhoea [Unknown]
  - Injection site haemorrhage [Unknown]
  - Injection site pain [Recovered/Resolved]
  - Injection site pain [Recovered/Resolved]

NARRATIVE: CASE EVENT DATE: 20180101
